FAERS Safety Report 4923996-8 (Version None)
Quarter: 2006Q1

REPORT INFORMATION
  Report Type: 
  Country: None (occurrence: None)
  Receive Date: 20060227
  Receipt Date: 20051021
  Transmission Date: 20060701
  Serious: Yes (Hospitalization, Other)
  Sender: FDA-Public Use
  Company Number: US-MERCK-0510USA08805

PATIENT
  Age: 66 Year
  Sex: Male
  Weight: 78 kg

DRUGS (4)
  1. VIOXX [Suspect]
     Indication: SPINAL OSTEOARTHRITIS
     Route: 048
     Dates: start: 20001010, end: 20020418
  2. VIOXX [Suspect]
     Route: 048
     Dates: start: 20020601, end: 20040101
  3. VIOXX [Suspect]
     Indication: MUSCULOSKELETAL DISCOMFORT
     Route: 048
     Dates: start: 20001010, end: 20020418
  4. VIOXX [Suspect]
     Route: 048
     Dates: start: 20020601, end: 20040101

REACTIONS (32)
  - ABSCESS [None]
  - ACCELERATED HYPERTENSION [None]
  - ANAEMIA OF CHRONIC DISEASE [None]
  - BRONCHITIS [None]
  - CARDIAC DISORDER [None]
  - CARDIAC FAILURE CONGESTIVE [None]
  - CAROTID ARTERY STENOSIS [None]
  - CEREBROVASCULAR ACCIDENT [None]
  - DYSPHAGIA [None]
  - FIBROSIS [None]
  - FOREIGN BODY ASPIRATION [None]
  - HAEMOPTYSIS [None]
  - HERPES SIMPLEX [None]
  - HIATUS HERNIA [None]
  - HYPERKALAEMIA [None]
  - HYPERTENSION [None]
  - HYPONATRAEMIA [None]
  - LUNG CONSOLIDATION [None]
  - OESOPHAGEAL CANDIDIASIS [None]
  - OESOPHAGEAL CARCINOMA [None]
  - OSTEOARTHRITIS [None]
  - PLEURAL EFFUSION [None]
  - PNEUMONIA [None]
  - PULMONARY MASS [None]
  - RENAL FAILURE [None]
  - RHINITIS ALLERGIC [None]
  - SWELLING FACE [None]
  - SYNCOPE [None]
  - SYSTOLIC HYPERTENSION [None]
  - THROAT CANCER [None]
  - TONGUE NEOPLASM MALIGNANT STAGE UNSPECIFIED [None]
  - TRANSIENT ISCHAEMIC ATTACK [None]
